FAERS Safety Report 9593811 (Version 1)
Quarter: 2013Q4

REPORT INFORMATION
  Report Type: Report from Study
  Country: AR (occurrence: AR)
  Receive Date: 20131004
  Receipt Date: 20131004
  Transmission Date: 20140711
  Serious: Yes (Life-Threatening, Hospitalization, Disabling)
  Sender: FDA-Public Use
  Company Number: AR-TEVA-435408ISR

PATIENT
  Age: 57 Year
  Sex: Female

DRUGS (8)
  1. METHOTREXATE [Suspect]
     Indication: RHEUMATOID ARTHRITIS
     Route: 048
     Dates: start: 20120206, end: 20121018
  2. BMS-945429 25MG [Suspect]
     Indication: RHEUMATOID ARTHRITIS
     Route: 058
     Dates: start: 20120206, end: 20121018
  3. FOLIC ACID [Concomitant]
     Dates: start: 20100518, end: 20121018
  4. OMEPRAZOLE [Concomitant]
     Dosage: 20 MILLIGRAM DAILY;
     Dates: start: 20101006
  5. PARACETAMOL [Concomitant]
     Dosage: 2 GRAM DAILY;
     Dates: start: 20101006, end: 20121018
  6. IBUPROFEN [Concomitant]
     Dosage: 1200 MILLIGRAM DAILY;
     Dates: start: 20120506, end: 20121018
  7. PREDNISONE [Concomitant]
     Dosage: 5 MILLIGRAM DAILY;
     Dates: start: 20110202
  8. PLENACOR D [Concomitant]

REACTIONS (4)
  - Beta haemolytic streptococcal infection [Recovered/Resolved]
  - Acute respiratory failure [Recovered/Resolved]
  - Critical illness polyneuropathy [Recovered/Resolved with Sequelae]
  - Critical illness myopathy [Recovered/Resolved with Sequelae]
